FAERS Safety Report 4719141-4 (Version None)
Quarter: 2005Q3

REPORT INFORMATION
  Report Type: 
  Country: None (occurrence: None)
  Receive Date: 20050720
  Receipt Date: 20050711
  Transmission Date: 20060218
  Serious: Yes (Other)
  Sender: FDA-Public Use
  Company Number: 2005-07-0430

PATIENT
  Sex: Female

DRUGS (5)
  1. TEMODAL [Suspect]
     Indication: GLIOBLASTOMA
     Dosage: ORAL
     Route: 048
  2. BACTRIM [Suspect]
     Dosage: DISCONTINUED
  3. RADIATION THERAPY [Concomitant]
  4. DEPAKENE [Concomitant]
  5. HEPATA-A-MYL [Concomitant]

REACTIONS (4)
  - ANGIONEUROTIC OEDEMA [None]
  - ERYTHEMA [None]
  - FACE OEDEMA [None]
  - TOXIC SKIN ERUPTION [None]
